FAERS Safety Report 10029905 (Version 1)
Quarter: 2014Q1

REPORT INFORMATION
  Report Type: Spontaneous
  Country: US (occurrence: None)
  Receive Date: 20140306
  Receipt Date: 20140306
  Transmission Date: 20141002
  Serious: Yes (Other)
  Sender: FDA-Public Use
  Company Number: 163-21880-12110688

PATIENT
  Age: 59 Year
  Sex: Female

DRUGS (1)
  1. REVLIMID (LENALIDOMIDE) (10 MILLIGRAM, CAPSULES) [Suspect]
     Indication: PLASMA CELL MYELOMA
     Dosage: 20 MG, 21 IN 28 D, PO
     Route: 048
     Dates: start: 20120817

REACTIONS (4)
  - Red blood cell count decreased [None]
  - Rash [None]
  - Diarrhoea [None]
  - Local swelling [None]
